FAERS Safety Report 11010995 (Version 3)
Quarter: 2015Q3

REPORT INFORMATION
  Report Type: Report from Study
  Country: DE (occurrence: DE)
  Receive Date: 20150410
  Receipt Date: 20150821
  Transmission Date: 20151125
  Serious: Yes (Hospitalization)
  Sender: FDA-Public Use
  Company Number: DE-BRISTOL-MYERS SQUIBB COMPANY-BMS-2015-021848

PATIENT
  Age: 72 Year
  Sex: Male
  Weight: 84 kg

DRUGS (22)
  1. RANITIDINE [Concomitant]
     Active Substance: RANITIDINE\RANITIDINE HYDROCHLORIDE
     Dosage: UNK, QWK
     Route: 042
     Dates: start: 20131126, end: 20140121
  2. GRANISETRON [Concomitant]
     Active Substance: GRANISETRON
     Indication: PREMEDICATION
     Dosage: UNK, QWK
     Route: 042
     Dates: start: 20130917
  3. GRANISETRON [Concomitant]
     Active Substance: GRANISETRON
     Dosage: UNK, QWK
     Route: 042
     Dates: start: 20131105
  4. GRANISETRON [Concomitant]
     Active Substance: GRANISETRON
     Dosage: UNK, QWK
     Route: 042
     Dates: start: 20131231, end: 20140114
  5. RANITIDINE [Concomitant]
     Active Substance: RANITIDINE\RANITIDINE HYDROCHLORIDE
     Indication: PREMEDICATION
     Dosage: UNK, QWK
     Route: 042
     Dates: start: 20130917, end: 20131022
  6. RANITIDINE [Concomitant]
     Active Substance: RANITIDINE\RANITIDINE HYDROCHLORIDE
     Dosage: UNK, QWK
     Route: 042
     Dates: start: 20140520, end: 20140603
  7. MINOCYCLINE [Concomitant]
     Active Substance: MINOCYCLINE\MINOCYCLINE HYDROCHLORIDE
     Indication: DERMATITIS ACNEIFORM
     Dosage: 200 MG, QD
     Route: 050
     Dates: start: 20131216, end: 20140126
  8. GRANISETRON [Concomitant]
     Active Substance: GRANISETRON
     Dosage: UNK, QWK
     Route: 042
     Dates: start: 20131126, end: 20131217
  9. GRANISETRON [Concomitant]
     Active Substance: GRANISETRON
     Dosage: UNK, QWK
     Route: 042
     Dates: start: 20140520
  10. GRANISETRON [Concomitant]
     Active Substance: GRANISETRON
     Dosage: UNK, QWK
     Route: 042
     Dates: start: 20140603
  11. RANITIDINE [Concomitant]
     Active Substance: RANITIDINE\RANITIDINE HYDROCHLORIDE
     Dosage: UNK, QWK
     Route: 042
     Dates: start: 20131105
  12. 5-FLUOROURACIL                     /00098801/ [Concomitant]
     Active Substance: FLUOROURACIL
     Indication: COLORECTAL CANCER METASTATIC
     Dosage: 2800 MG/M2, Q2WK
     Route: 042
     Dates: start: 20130917
  13. GRANISETRON [Concomitant]
     Active Substance: GRANISETRON
     Dosage: UNK, QWK
     Route: 042
     Dates: start: 20130924, end: 20131022
  14. MINOCYCLINE [Concomitant]
     Active Substance: MINOCYCLINE\MINOCYCLINE HYDROCHLORIDE
     Indication: PALMAR-PLANTAR ERYTHRODYSAESTHESIA SYNDROME
     Dosage: 200 MG, QD
     Route: 050
     Dates: start: 20140224, end: 20140326
  15. SOLU-DECORTIN [Concomitant]
     Active Substance: PREDNISOLONE SODIUM SUCCINATE
     Indication: PREMEDICATION
     Dosage: 100 MG, ONE TIME DOSE
     Route: 042
     Dates: start: 20140527
  16. CALCIUM FOLINATE [Concomitant]
     Active Substance: LEUCOVORIN CALCIUM
     Indication: COLORECTAL CANCER METASTATIC
     Dosage: 400 MG/M2, Q2WK
     Route: 042
     Dates: start: 20130917
  17. FENISTIL [Concomitant]
     Active Substance: DIMETHINDENE
     Indication: PREMEDICATION
     Dosage: 4 MG, ONE TIME DOSE
     Route: 042
     Dates: start: 20130917
  18. FENISTIL [Concomitant]
     Active Substance: DIMETHINDENE
     Indication: PRURITUS
  19. SOLU-DECORTIN [Concomitant]
     Active Substance: PREDNISOLONE SODIUM SUCCINATE
     Indication: PRURITUS
     Dosage: 200 MG, UNK
     Route: 050
     Dates: start: 20130917
  20. CETUXIMAB [Suspect]
     Active Substance: CETUXIMAB
     Indication: COLORECTAL CANCER METASTATIC
     Dosage: 400 MG/M2, QCYCLE
     Route: 042
     Dates: start: 20130917
  21. IRINOTECAN [Concomitant]
     Active Substance: IRINOTECAN
     Indication: COLORECTAL CANCER METASTATIC
     Dosage: 180 MG/M2, Q2WK
     Route: 042
     Dates: start: 20130917
  22. DEXAMETHASONE. [Concomitant]
     Active Substance: DEXAMETHASONE
     Indication: PREMEDICATION
     Dosage: 12 MG, ONE TIME DOSE
     Route: 042
     Dates: start: 20130917

REACTIONS (1)
  - Reflux gastritis [Recovered/Resolved]

NARRATIVE: CASE EVENT DATE: 20141021
